FAERS Safety Report 4616313-4 (Version None)
Quarter: 2005Q1

REPORT INFORMATION
  Report Type: 
  Country: None (occurrence: None)
  Receive Date: 20050321
  Receipt Date: 20050308
  Transmission Date: 20050727
  Serious: Yes (Hospitalization, Other)
  Sender: FDA-Public Use
  Company Number: 2005043279

PATIENT
  Age: 1 Day
  Sex: Female
  Weight: 3.1162 kg

DRUGS (1)
  1. NORVASC [Suspect]
     Indication: ILL-DEFINED DISORDER
     Dosage: PLACENTAL

REACTIONS (9)
  - CAESAREAN SECTION [None]
  - CARDIAC MURMUR [None]
  - CARDIAC VALVE DISEASE [None]
  - DRUG EXPOSURE DURING PREGNANCY [None]
  - DRUG EXPOSURE VIA BREAST MILK [None]
  - HYPOXIA [None]
  - MEAN ARTERIAL PRESSURE DECREASED [None]
  - NASOPHARYNGITIS [None]
  - PULMONARY HYPERTENSION [None]
